FAERS Safety Report 5951962-2 (Version None)
Quarter: 2008Q4

REPORT INFORMATION
  Report Type: 
  Country: None (occurrence: None)
  Receive Date: 20081113
  Receipt Date: 20071017
  Transmission Date: 20090506
  Serious: No
  Sender: FDA-Public Use
  Company Number: A0686131A

PATIENT
  Age: 71 Year
  Sex: Female

DRUGS (14)
  1. COREG [Suspect]
     Dosage: 3.125MG TWICE PER DAY
     Route: 048
     Dates: start: 20070401
  2. ACIPHEX [Concomitant]
  3. HYDROCHLOROTHIAZIDE [Concomitant]
  4. CARAFATE [Concomitant]
  5. LEVSIN [Concomitant]
  6. CLORAZEPATE DIPOTASSIUM [Concomitant]
  7. PROZAC [Concomitant]
  8. ACTION [Concomitant]
  9. SYNTHROID [Concomitant]
  10. POTASSIUM CHLORIDE [Concomitant]
  11. FLONASE [Concomitant]
  12. ASPIRIN [Concomitant]
  13. ASCORBIC ACID [Concomitant]
  14. FIBER [Concomitant]

REACTIONS (3)
  - EXTRASYSTOLES [None]
  - HEART RATE DECREASED [None]
  - HYPOTENSION [None]
